FAERS Safety Report 13642956 (Version 1)
Quarter: 2017Q2

REPORT INFORMATION
  Report Type: Spontaneous
  Country: US (occurrence: US)
  Receive Date: 20170612
  Receipt Date: 20170612
  Transmission Date: 20170830
  Serious: Yes (Other)
  Sender: FDA-Public Use
  Company Number: US-CONCORDIA LABORATORIES INC.-PIN-2016-00020

PATIENT
  Sex: Male

DRUGS (1)
  1. PHOTOFRIN [Suspect]
     Active Substance: PORFIMER SODIUM
     Indication: OESOPHAGEAL CARCINOMA
     Route: 065
     Dates: start: 20160323, end: 20160323

REACTIONS (1)
  - Oesophageal stenosis [Unknown]
